FAERS Safety Report 7512791-1 (Version None)
Quarter: 2011Q2

REPORT INFORMATION
  Report Type: 
  Country: None (occurrence: None)
  Receive Date: 20110531
  Receipt Date: 20110519
  Transmission Date: 20111010
  Serious: Yes (Hospitalization)
  Sender: FDA-Public Use
  Company Number: B0720271A

PATIENT
  Sex: Male

DRUGS (9)
  1. HALDOL [Concomitant]
     Dosage: 5DROP THREE TIMES PER DAY
     Route: 048
  2. NEXIUM [Concomitant]
     Dosage: 20MG PER DAY
     Route: 048
  3. ISOPTIN [Concomitant]
     Dosage: 240MG PER DAY
     Route: 048
  4. TIAPRIDAL [Concomitant]
     Dosage: 100MG THREE TIMES PER DAY
     Route: 048
  5. ARIXTRA [Suspect]
     Dosage: 7.5MG PER DAY
     Route: 058
     Dates: start: 20101222, end: 20110106
  6. MIDAZOLAM HYDROCHLORIDE [Concomitant]
     Route: 042
  7. CAPTOPRIL [Concomitant]
     Dosage: 25MG PER DAY
     Route: 048
  8. TRANXENE [Concomitant]
     Dosage: 5MG FOUR TIMES PER DAY
     Route: 048
     Dates: start: 20101003
  9. KEPPRA [Concomitant]
     Dosage: 500MG FOUR TIMES PER DAY
     Route: 048
     Dates: start: 20101216

REACTIONS (4)
  - LEUKOCYTOSIS [None]
  - HAEMATOMA [None]
  - NORMOCHROMIC NORMOCYTIC ANAEMIA [None]
  - MOBILITY DECREASED [None]
